FAERS Safety Report 15931050 (Version 1)
Quarter: 2019Q1

REPORT INFORMATION
  Report Type: Other
  Country: ES (occurrence: ES)
  Receive Date: 20190207
  Receipt Date: 20190207
  Transmission Date: 20190417
  Serious: Yes (Hospitalization, Other)
  Sender: FDA-Public Use
  Company Number: ES-MACLEODS PHARMACEUTICALS US LTD-MAC2019019966

PATIENT

DRUGS (1)
  1. IRBESARTAN/HYDROCHLOROTHIAZIDE 300/12.5 MG TABLET [Suspect]
     Active Substance: HYDROCHLOROTHIAZIDE\IRBESARTAN
     Indication: CARDIAC FAILURE
     Dosage: 0.5 DOSAGE FORM, QD, 1/2-0-0, HYDROCHLOROTHIAZIDE 12.5 MG, IRBESARTAN 300 MG - FILM-COATED TABLET
     Route: 048
     Dates: start: 20150312, end: 20180124

REACTIONS (2)
  - Paresis [Recovered/Resolved]
  - Hypokalaemia [Recovered/Resolved]

NARRATIVE: CASE EVENT DATE: 20180124
